FAERS Safety Report 15927360 (Version 9)
Quarter: 2019Q3

REPORT INFORMATION
  Report Type: Report from Study
  Country: CA (occurrence: CA)
  Receive Date: 20190206
  Receipt Date: 20190923
  Transmission Date: 20191004
  Serious: Yes (Hospitalization, Other)
  Sender: FDA-Public Use
  Company Number: CA-SA-2017SA113995

PATIENT
  Age: 48 Year
  Sex: Female

DRUGS (15)
  1. RANITIDINE. [Concomitant]
     Active Substance: RANITIDINE
     Indication: PREMEDICATION
     Dosage: 150 MG,UNK
     Route: 048
     Dates: start: 20170619, end: 20170621
  2. REQUIP [Concomitant]
     Active Substance: ROPINIROLE HYDROCHLORIDE
     Dosage: .25 MG,HS
     Route: 048
  3. SENOKOT [Concomitant]
     Active Substance: SENNOSIDES
     Indication: CONSTIPATION
     Dosage: UNK UNK,3 HS
     Route: 048
  4. REACTINE [CETIRIZINE HYDROCHLORIDE] [Concomitant]
     Active Substance: CETIRIZINE HYDROCHLORIDE
     Indication: PREMEDICATION
     Dosage: 10 MG,UNK
     Route: 048
     Dates: start: 20170619, end: 20170621
  5. ALEMTUZUMAB [Suspect]
     Active Substance: ALEMTUZUMAB
     Indication: RELAPSING-REMITTING MULTIPLE SCLEROSIS
     Dosage: 12 MG,QD
     Route: 041
     Dates: start: 20170619, end: 20170619
  6. ALEMTUZUMAB [Suspect]
     Active Substance: ALEMTUZUMAB
     Dosage: 12 MG, QD
     Route: 041
     Dates: start: 20170620, end: 20170621
  7. METHYLPREDNISOLONE. [Concomitant]
     Active Substance: METHYLPREDNISOLONE
     Indication: PREMEDICATION
     Dosage: 1 G,UNK
     Route: 042
     Dates: start: 20170619, end: 20170621
  8. EFFEXOR [Concomitant]
     Active Substance: VENLAFAXINE HYDROCHLORIDE
     Dosage: 187.5 MG,QD
     Route: 048
  9. ACICLOVIR [Concomitant]
     Active Substance: ACYCLOVIR
     Indication: PREMEDICATION
     Dosage: 200 MG,BID
     Route: 048
     Dates: start: 20170619
  10. METHYLPREDNISOLONE. [Concomitant]
     Active Substance: METHYLPREDNISOLONE
     Dosage: 50 MG, QD
     Dates: start: 20190207
  11. GRAVOL [Concomitant]
     Active Substance: DIMENHYDRINATE
     Indication: PREMEDICATION
     Dosage: 50 MG,UNK
     Route: 048
     Dates: start: 20170619, end: 20170621
  12. ERGOCALCIFEROL. [Concomitant]
     Active Substance: ERGOCALCIFEROL
     Dosage: 4000 IU,QD
     Route: 048
  13. MAGNESIUM [Concomitant]
     Active Substance: MAGNESIUM
     Dosage: UNK UNK,QD
     Route: 048
  14. BENADRYL [Concomitant]
     Active Substance: DIPHENHYDRAMINE HYDROCHLORIDE
     Indication: PREMEDICATION
     Dosage: 25 MG,UNK
     Route: 048
     Dates: start: 20170619, end: 20170621
  15. PARACETAMOL [Concomitant]
     Active Substance: ACETAMINOPHEN
     Indication: PREMEDICATION
     Dosage: UNK, UNK
     Route: 048
     Dates: start: 20170619, end: 20170621

REACTIONS (62)
  - Respiratory tract congestion [Recovered/Resolved]
  - Specific gravity urine decreased [Unknown]
  - Aphasia [Recovered/Resolved]
  - Contusion [Not Recovered/Not Resolved]
  - Blood sodium decreased [Unknown]
  - Trichomoniasis [Recovering/Resolving]
  - Vulvovaginal burning sensation [Not Recovered/Not Resolved]
  - Platelet count decreased [Recovered/Resolved]
  - Eye pain [Not Recovered/Not Resolved]
  - Chest discomfort [Recovered/Resolved]
  - Flushing [Not Recovered/Not Resolved]
  - Lymphocyte count decreased [Not Recovered/Not Resolved]
  - Feeling of body temperature change [Recovered/Resolved]
  - Contusion [Not Recovered/Not Resolved]
  - Erythema [Not Recovered/Not Resolved]
  - Rash [Not Recovered/Not Resolved]
  - Sneezing [Recovered/Resolved]
  - Paraesthesia [Recovering/Resolving]
  - Gait disturbance [Recovering/Resolving]
  - Hyperhidrosis [Recovered/Resolved]
  - Gingival bleeding [Not Recovered/Not Resolved]
  - Hair texture abnormal [Not Recovered/Not Resolved]
  - Mean platelet volume decreased [Unknown]
  - Hypertension [Recovered/Resolved]
  - Hot flush [Recovered/Resolved]
  - Tachycardia [Recovered/Resolved]
  - Hypotension [Recovered/Resolved]
  - Temperature regulation disorder [Recovered/Resolved]
  - Middle insomnia [Recovered/Resolved]
  - Therapeutic response decreased [Unknown]
  - Epistaxis [Not Recovered/Not Resolved]
  - Hyperthyroidism [Not Recovered/Not Resolved]
  - Autoimmune thyroiditis [Not Recovered/Not Resolved]
  - Thyroid cancer [Recovered/Resolved]
  - Mental disorder [Recovering/Resolving]
  - Alopecia [Recovered/Resolved]
  - Red cell distribution width increased [Recovered/Resolved]
  - Hypothyroidism [Not Recovered/Not Resolved]
  - Blood urea decreased [Unknown]
  - Petechiae [Not Recovered/Not Resolved]
  - Alopecia [Not Recovered/Not Resolved]
  - Limb discomfort [Recovering/Resolving]
  - Feeling abnormal [Recovered/Resolved]
  - Muscle tightness [Recovering/Resolving]
  - Hypersensitivity [Recovered/Resolved]
  - Vaginal odour [Recovering/Resolving]
  - Basedow^s disease [Not Recovered/Not Resolved]
  - Perioral dermatitis [Recovered/Resolved]
  - Sensory loss [Recovering/Resolving]
  - Weight increased [Recovered/Resolved]
  - Blood chloride decreased [Unknown]
  - Feeling abnormal [Recovered/Resolved]
  - Blood fibrinogen increased [Unknown]
  - Epistaxis [Not Recovered/Not Resolved]
  - Immune thrombocytopenic purpura [Not Recovered/Not Resolved]
  - Skin discolouration [Not Recovered/Not Resolved]
  - Weight increased [Not Recovered/Not Resolved]
  - Headache [Recovered/Resolved]
  - Speech disorder [Not Recovered/Not Resolved]
  - Swelling [Not Recovered/Not Resolved]
  - Initial insomnia [Recovered/Resolved]
  - Fatigue [Recovered/Resolved]

NARRATIVE: CASE EVENT DATE: 2017
